FAERS Safety Report 15859783 (Version 1)
Quarter: 2019Q1

REPORT INFORMATION
  Report Type: Spontaneous
  Country: US (occurrence: US)
  Receive Date: 20190123
  Receipt Date: 20190123
  Transmission Date: 20190417
  Serious: No
  Sender: FDA-Public Use
  Company Number: US-ABBVIE-19P-163-2631836-00

PATIENT
  Sex: Female

DRUGS (2)
  1. ORILISSA [Suspect]
     Active Substance: ELAGOLIX SODIUM
     Route: 048
  2. ORILISSA [Suspect]
     Active Substance: ELAGOLIX SODIUM
     Indication: ENDOMETRIOSIS
     Route: 048

REACTIONS (4)
  - Fatigue [Recovering/Resolving]
  - Intentional product misuse [Unknown]
  - Anorgasmia [Not Recovered/Not Resolved]
  - Nausea [Recovering/Resolving]

NARRATIVE: CASE EVENT DATE: 2018
